FAERS Safety Report 5477565-4 (Version None)
Quarter: 2007Q3

REPORT INFORMATION
  Report Type: 
  Country: None (occurrence: None)
  Receive Date: 20070925
  Receipt Date: 20070829
  Transmission Date: 20080115
  Serious: No
  Sender: FDA-Public Use
  Company Number: 2007US001598

PATIENT
  Age: 81 Year
  Sex: Female
  Weight: 47.2 kg

DRUGS (13)
  1. VESICARE [Suspect]
     Dosage: 5 MG, ORAL
     Route: 048
     Dates: start: 20061101
  2. POTASSIUM (POTASSIUM CHLORIDE) [Concomitant]
  3. METFORMIN HCL [Concomitant]
  4. TOPROL-XL [Concomitant]
  5. ARTHROTEC [Concomitant]
  6. FUROSEMIDE (FUROSEMIDE SODIUM) [Concomitant]
  7. ASPIRIN [Concomitant]
  8. CENTRUM SILVER (ASCORBIC ACID, MINERALS NOS, VITAMINS NOS, VITAMIN B N [Concomitant]
  9. FISH OIL (FISH OIL) [Concomitant]
  10. FOSAMAX [Concomitant]
  11. FELODIPINE (FELODIPINE SODIUM) [Concomitant]
  12. ECONOPRED (PREDNISOLONE ACETATE) [Concomitant]
  13. VIGAMOX [Concomitant]

REACTIONS (1)
  - AMNESIA [None]
